FAERS Safety Report 23093055 (Version 1)
Quarter: 2023Q4

REPORT INFORMATION
  Report Type: Report from Study
  Country: US (occurrence: US)
  Receive Date: 20231021
  Receipt Date: 20231021
  Transmission Date: 20240109
  Serious: Yes (Hospitalization, Other)
  Sender: FDA-Public Use
  Company Number: US-TEVA-2023-US-2907338

PATIENT
  Age: 46 Year
  Sex: Female

DRUGS (2)
  1. CINQAIR [Suspect]
     Active Substance: RESLIZUMAB
     Indication: Product used for unknown indication
     Route: 065
     Dates: start: 20230707, end: 2023
  2. SINGULAIR [Concomitant]
     Active Substance: MONTELUKAST SODIUM
     Indication: Product used for unknown indication

REACTIONS (15)
  - Pruritus [Not Recovered/Not Resolved]
  - Nausea [Unknown]
  - Dyspnoea [Unknown]
  - Throat tightness [Unknown]
  - Rash [Not Recovered/Not Resolved]
  - Upper respiratory tract infection [Unknown]
  - Heart rate increased [Unknown]
  - Influenza like illness [Unknown]
  - Limb discomfort [Unknown]
  - Fatigue [Recovered/Resolved]
  - Oropharyngeal pain [Recovered/Resolved]
  - Wheezing [Recovered/Resolved]
  - Peak expiratory flow rate decreased [Recovered/Resolved]
  - Malaise [Recovered/Resolved]
  - Therapeutic response shortened [Unknown]

NARRATIVE: CASE EVENT DATE: 20230101
